FAERS Safety Report 15709138 (Version 1)
Quarter: 2018Q4

REPORT INFORMATION
  Report Type: Spontaneous
  Country: US (occurrence: US)
  Receive Date: 20181211
  Receipt Date: 20181211
  Transmission Date: 20190205
  Serious: No
  Sender: FDA-Public Use
  Company Number: US-AUROBINDO-AUR-APU-2018-043179

PATIENT
  Sex: Male

DRUGS (1)
  1. MIRTAZAPINE TABLETS 15 MG [Suspect]
     Active Substance: MIRTAZAPINE
     Indication: PRODUCT USED FOR UNKNOWN INDICATION
     Dosage: UNK
     Route: 065
     Dates: start: 20180820, end: 20180820

REACTIONS (4)
  - Accidental exposure to product by child [Unknown]
  - Product packaging issue [Unknown]
  - Somnolence [Recovered/Resolved]
  - No adverse event [Unknown]
